FAERS Safety Report 18997419 (Version 1)
Quarter: 2021Q1

REPORT INFORMATION
  Report Type: Spontaneous
  Country: BR (occurrence: BR)
  Receive Date: 20210311
  Receipt Date: 20210311
  Transmission Date: 20210420
  Serious: Yes (Other)
  Sender: FDA-Public Use
  Company Number: BR-GLAXOSMITHKLINE-BR2021AMR058972

PATIENT
  Sex: Female

DRUGS (1)
  1. AEROLIN [Suspect]
     Active Substance: ALBUTEROL
     Indication: ASTHMA
     Dosage: UNK, 2 TO 4 JETS PER DAY, 200 SPRAY DOSES

REACTIONS (1)
  - Asthmatic crisis [Unknown]
